FAERS Safety Report 6358196-0 (Version None)
Quarter: 2009Q3

REPORT INFORMATION
  Report Type: 
  Country: None (occurrence: None)
  Receive Date: 20090916
  Receipt Date: 20090908
  Transmission Date: 20100115
  Serious: Yes (Disabling, Other)
  Sender: FDA-Public Use
  Company Number: CA-ASTRAZENECA-2009SE08796

PATIENT
  Sex: Female

DRUGS (10)
  1. CRESTOR [Suspect]
     Route: 048
     Dates: start: 20080101
  2. CALCIUM WITH VITAMINE D [Concomitant]
     Indication: OSTEOPOROSIS PROPHYLAXIS
  3. VITAMIN B-12 [Concomitant]
  4. ASPIRIN [Concomitant]
     Indication: CARDIOVASCULAR EVENT PROPHYLAXIS
  5. AMITRIPTYLINE HCL [Concomitant]
     Indication: INSOMNIA
  6. AMITRIPTYLINE HCL [Concomitant]
     Indication: RESTLESS LEGS SYNDROME
  7. VITAMIN D [Concomitant]
     Indication: OSTEOPOROSIS
  8. CANDESARTAN CILEXETIL [Concomitant]
     Indication: HYPERTENSION
     Route: 048
  9. LISINOPRIL [Concomitant]
     Indication: HYPERTENSION
     Route: 048
  10. PRAVASTATIN [Concomitant]
     Indication: BLOOD CHOLESTEROL INCREASED

REACTIONS (3)
  - MUSCULOSKELETAL PAIN [None]
  - NECK PAIN [None]
  - PAIN IN EXTREMITY [None]
